FAERS Safety Report 4505233-1 (Version None)
Quarter: 2004Q4

REPORT INFORMATION
  Report Type: 
  Country: None (occurrence: None)
  Receive Date: 20041015
  Receipt Date: 20040707
  Transmission Date: 20050328
  Serious: Yes (Other)
  Sender: FDA-Public Use
  Company Number: 2004045942

PATIENT
  Sex: Female
  Weight: 68.0396 kg

DRUGS (1)
  1. NEURONTIN [Suspect]
     Indication: ANXIETY
     Dosage: 500 MG (2 IN 1 D), ORAL
     Route: 048
     Dates: start: 19990101

REACTIONS (1)
  - DEAFNESS [None]
